FAERS Safety Report 7090442-0 (Version None)
Quarter: 2010Q4

REPORT INFORMATION
  Report Type: 
  Country: None (occurrence: None)
  Receive Date: 20101109
  Receipt Date: 20100816
  Transmission Date: 20110411
  Serious: Yes (Hospitalization)
  Sender: FDA-Public Use
  Company Number: US-BAYER-201013227NA

PATIENT
  Age: 21 Year
  Sex: Female
  Weight: 84 kg

DRUGS (3)
  1. YAZ [Suspect]
     Indication: PRODUCT USED FOR UNKNOWN INDICATION
     Route: 048
     Dates: start: 20010101, end: 20030101
  2. UNKNOWN VITAMIN [Concomitant]
  3. CLARITIN-D [Concomitant]
     Indication: MULTIPLE ALLERGIES

REACTIONS (3)
  - ABDOMINAL PAIN UPPER [None]
  - CHOLECYSTITIS [None]
  - CHOLELITHIASIS [None]
